FAERS Safety Report 8610252-X (Version None)
Quarter: 2012Q3

REPORT INFORMATION
  Report Type: 
  Country: None (occurrence: None)
  Receive Date: 20120810
  Receipt Date: 20120810
  Transmission Date: 20120928
  Serious: Yes (Hospitalization)
  Sender: FDA-Public Use
  Company Number: None

PATIENT
  Sex: Female
  Weight: 66.9 kg

DRUGS (3)
  1. CISPLATIN [Suspect]
  2. GLIPIZIDE [Concomitant]
  3. METOPROLOL TARTRATE [Concomitant]

REACTIONS (1)
  - ATRIAL FIBRILLATION [None]
